FAERS Safety Report 9399448 (Version 1)
Quarter: 2013Q3

REPORT INFORMATION
  Report Type: Spontaneous
  Country: US (occurrence: None)
  Receive Date: 20130710
  Receipt Date: 20130710
  Transmission Date: 20140515
  Serious: Yes (Other)
  Sender: FDA-Public Use
  Company Number: SYM-2013-05158

PATIENT
  Age: 47 Year
  Sex: Female
  Weight: 68.04 kg

DRUGS (2)
  1. CERAVE SUNSCREEN BROAD SPECTRUM SPF 50 [Suspect]
     Dosage: EVERY 30 MINUTES WHILE IN THE SUN
     Route: 061
     Dates: start: 20130622, end: 20130623
  2. CERAVE SUNSCREEN BROAD SPECTRUM SPF 50 [Suspect]
     Dosage: EVERY 30 MINUTES WHILE IN THE SUN
     Route: 061
     Dates: start: 20130622, end: 20130622

REACTIONS (1)
  - Burns third degree [None]
